FAERS Safety Report 8030231-3 (Version None)
Quarter: 2012Q1

REPORT INFORMATION
  Report Type: 
  Country: None (occurrence: None)
  Receive Date: 20120109
  Receipt Date: 20120103
  Transmission Date: 20120608
  Serious: Yes (Other)
  Sender: FDA-Public Use
  Company Number: PHHY2011FR41581

PATIENT

DRUGS (1)
  1. IMATINIB MESYLATE [Suspect]
     Indication: CHRONIC MYELOID LEUKAEMIA
     Dosage: 400 MG, DAILY

REACTIONS (5)
  - FACE OEDEMA [None]
  - SQUAMOUS CELL CARCINOMA [None]
  - OEDEMA PERIPHERAL [None]
  - LOCALISED OEDEMA [None]
  - NEOPLASM MALIGNANT [None]
